FAERS Safety Report 6263847-5 (Version None)
Quarter: 2009Q3

REPORT INFORMATION
  Report Type: 
  Country: None (occurrence: None)
  Receive Date: 20090701
  Receipt Date: 20090126
  Transmission Date: 20100115
  Serious: Yes (Other)
  Sender: FDA-Public Use
  Company Number: 184352USA

PATIENT
  Age: 49 Year
  Sex: Male

DRUGS (1)
  1. CLARITHROMYCIN [Suspect]
     Indication: RESPIRATORY TRACT INFECTION
     Dosage: ORAL
     Route: 048
     Dates: start: 20081201, end: 20081201

REACTIONS (1)
  - DEAFNESS UNILATERAL [None]
